FAERS Safety Report 6806013-4 (Version None)
Quarter: 2010Q2

REPORT INFORMATION
  Report Type: 
  Country: None (occurrence: None)
  Receive Date: 20100629
  Receipt Date: 20080115
  Transmission Date: 20101027
  Serious: No
  Sender: FDA-Public Use
  Company Number: US-PFIZER INC-2007091175

PATIENT
  Sex: Male
  Weight: 95.25 kg

DRUGS (8)
  1. TIKOSYN [Suspect]
     Indication: ATRIAL FIBRILLATION
     Dates: start: 20070824
  2. ALPRAZOLAM [Concomitant]
  3. SIMVASTATIN [Concomitant]
  4. WARFARIN [Concomitant]
  5. VALTREX [Concomitant]
  6. CIALIS [Concomitant]
  7. VIAGRA [Concomitant]
  8. CELEBREX [Concomitant]
     Indication: OSTEOARTHRITIS

REACTIONS (1)
  - BACK PAIN [None]
